FAERS Safety Report 19496683 (Version 1)
Quarter: 2021Q3

REPORT INFORMATION
  Report Type: Spontaneous
  Country: US (occurrence: US)
  Receive Date: 20210701
  Receipt Date: 20210701
  Transmission Date: 20211014
  Serious: No
  Sender: FDA-Public Use
  Company Number: None

PATIENT
  Age: 43 Year
  Sex: Female

DRUGS (6)
  1. METOPROLOL. [Concomitant]
     Active Substance: METOPROLOL
  2. HYDROXYCHLOROQUINE [Concomitant]
     Active Substance: HYDROXYCHLOROQUINE
  3. PREDNISONE. [Concomitant]
     Active Substance: PREDNISONE
  4. FUROSEMIDE. [Concomitant]
     Active Substance: FUROSEMIDE
  5. CINACALCET 60MG [Suspect]
     Active Substance: CINACALCET
     Route: 048
     Dates: start: 20210116
  6. CHLORTAHLIDONE [Concomitant]

REACTIONS (1)
  - Hypocalcaemia [None]
